FAERS Safety Report 8832594 (Version 3)
Quarter: 2013Q3

REPORT INFORMATION
  Report Type: Spontaneous
  Country: US (occurrence: US)
  Receive Date: 20121010
  Receipt Date: 20130725
  Transmission Date: 20140515
  Serious: Yes (Death)
  Sender: FDA-Public Use
  Company Number: US-009507513-1210USA003667

PATIENT
  Age: 76 Year
  Sex: Male

DRUGS (8)
  1. INTEGRILIN [Suspect]
     Indication: PERCUTANEOUS CORONARY INTERVENTION
     Dosage: INFUSION
     Dates: start: 20120923, end: 20120924
  2. COUMADIN [Concomitant]
  3. ASPIRIN [Concomitant]
  4. METOPROLOL [Concomitant]
  5. PRINIVIL [Concomitant]
  6. BRILINTA [Concomitant]
  7. PROTONIX [Concomitant]
  8. LIPITOR [Concomitant]

REACTIONS (1)
  - Myocardial infarction [Fatal]
